FAERS Safety Report 15285976 (Version 2)
Quarter: 2018Q4

REPORT INFORMATION
  Report Type: Report from Study
  Country: IT (occurrence: IT)
  Receive Date: 20180816
  Receipt Date: 20181003
  Transmission Date: 20190204
  Serious: Yes (Other)
  Sender: FDA-Public Use
  Company Number: IT-TEVA-2018-IT-942711

PATIENT
  Age: 30 Year
  Sex: Female

DRUGS (6)
  1. LOETTE 0,100 MG + 0,02 MG COMPRESSE RIVESTITE [Concomitant]
     Route: 048
  2. COPAXONE [Suspect]
     Active Substance: GLATIRAMER ACETATE
     Indication: MULTIPLE SCLEROSIS
     Route: 058
     Dates: start: 20150403, end: 20150611
  3. FOLINA 5 MG CAPSULE MOLLI [Concomitant]
     Indication: BLOOD FOLATE DECREASED
     Route: 048
  4. HIRUDOID 25.000 U.I. CREMA [Concomitant]
     Indication: INFLAMMATION
     Route: 003
  5. GABAPENTIN. [Concomitant]
     Active Substance: GABAPENTIN
     Indication: NEURALGIA
     Route: 048
  6. ALMOTRIPTAN MALATE. [Concomitant]
     Active Substance: ALMOTRIPTAN MALATE
     Indication: HEADACHE
     Route: 048

REACTIONS (1)
  - Drug-induced liver injury [Recovering/Resolving]

NARRATIVE: CASE EVENT DATE: 20150610
